FAERS Safety Report 14690868 (Version 1)
Quarter: 2018Q1

REPORT INFORMATION
  Report Type: Spontaneous
  Country: US (occurrence: US)
  Receive Date: 20180328
  Receipt Date: 20180328
  Transmission Date: 20180509
  Serious: No
  Sender: FDA-Public Use
  Company Number: None

PATIENT
  Age: 9 Year
  Sex: Male

DRUGS (1)
  1. PRE-PEN [Suspect]
     Active Substance: BENZYLPENICILLOYL POLYLYSINE
     Indication: HYPERSENSITIVITY
     Dosage: 6.0 X 10E-5 M ONCE SCRATCH TEST AND INTRADEMAL

REACTIONS (1)
  - Drug hypersensitivity [None]
